FAERS Safety Report 6816238-X (Version None)
Quarter: 2010Q3

REPORT INFORMATION
  Report Type: 
  Country: None (occurrence: None)
  Receive Date: 20100702
  Receipt Date: 20100702
  Transmission Date: 20110219
  Serious: Yes (Hospitalization)
  Sender: FDA-Public Use
  Company Number: None

PATIENT
  Sex: Female
  Weight: 44.4 kg

DRUGS (3)
  1. SODIUM THIOSULFATE [Suspect]
     Dosage: 47 G
  2. CISPLATIN [Concomitant]
  3. DOXORUBICIN HCL [Concomitant]

REACTIONS (8)
  - ABDOMINAL PAIN [None]
  - DYSPHAGIA [None]
  - HYPOPHAGIA [None]
  - NEUTROPHIL COUNT DECREASED [None]
  - NO THERAPEUTIC RESPONSE [None]
  - OROPHARYNGEAL PAIN [None]
  - PROCTALGIA [None]
  - PYREXIA [None]
